FAERS Safety Report 21014166 (Version 2)
Quarter: 2022Q3

REPORT INFORMATION
  Report Type: Spontaneous
  Country: DE (occurrence: DE)
  Receive Date: 20220627
  Receipt Date: 20220705
  Transmission Date: 20221027
  Serious: Yes (Other)
  Sender: FDA-Public Use
  Company Number: DE-GILEAD-2022-0587208

PATIENT
  Age: 39 Year
  Sex: Male

DRUGS (5)
  1. DESCOVY [Suspect]
     Active Substance: EMTRICITABINE\TENOFOVIR ALAFENAMIDE FUMARATE
     Indication: HIV infection
     Dosage: UNK
     Route: 065
     Dates: start: 201606
  2. DOLUTEGRAVIR [Concomitant]
     Active Substance: DOLUTEGRAVIR
     Dosage: UNK
     Dates: start: 201606
  3. LAMIVUDINE\ZIDOVUDINE [Concomitant]
     Active Substance: LAMIVUDINE\ZIDOVUDINE
     Dosage: UNK
     Dates: start: 2008, end: 201306
  4. LOPINAVIR\RITONAVIR [Concomitant]
     Active Substance: LOPINAVIR\RITONAVIR
     Dosage: UNK
     Dates: start: 2008, end: 201306
  5. RITUXIMAB [Concomitant]
     Active Substance: RITUXIMAB

REACTIONS (24)
  - Atypical mycobacterial infection [Unknown]
  - Hepatic cirrhosis [Unknown]
  - Castleman^s disease [Unknown]
  - Staphylococcal bacteraemia [Unknown]
  - Asthma [Unknown]
  - Asthma [Unknown]
  - Oral pain [Unknown]
  - Odynophagia [Unknown]
  - Tongue ulceration [Unknown]
  - Herpes simplex [Unknown]
  - Aphthous ulcer [Unknown]
  - Arthralgia [Unknown]
  - Fatigue [Unknown]
  - Decreased appetite [Unknown]
  - Weight decreased [Unknown]
  - Feeding disorder [Unknown]
  - Pain [Unknown]
  - Cough [Unknown]
  - Rash [Recovered/Resolved]
  - Lymphadenopathy [Recovered/Resolved]
  - Pain [Recovering/Resolving]
  - Arthralgia [Recovering/Resolving]
  - Molluscum contagiosum [Unknown]
  - Gastrointestinal disorder [Unknown]

NARRATIVE: CASE EVENT DATE: 20180101
